FAERS Safety Report 9293088 (Version 1)
Quarter: 2013Q2

REPORT INFORMATION
  Report Type: Spontaneous
  Country: US (occurrence: None)
  Receive Date: 20130515
  Receipt Date: 20130515
  Transmission Date: 20140414
  Serious: Yes (Hospitalization)
  Sender: FDA-Public Use
  Company Number: None

PATIENT
  Age: 2 Year
  Sex: Female

DRUGS (1)
  1. GEODON [Suspect]
     Indication: ACCIDENTAL EXPOSURE TO PRODUCT
     Dosage: 3 CAPSULES
     Route: 048
     Dates: start: 20130511, end: 20130511

REACTIONS (1)
  - Accidental exposure to product [None]
